FAERS Safety Report 7089822-9 (Version None)
Quarter: 2010Q4

REPORT INFORMATION
  Report Type: 
  Country: None (occurrence: None)
  Receive Date: 20101108
  Receipt Date: 20101102
  Transmission Date: 20110411
  Serious: Yes (Hospitalization)
  Sender: FDA-Public Use
  Company Number: KR-SANOFI-AVENTIS-2010SA047077

PATIENT
  Sex: Male
  Weight: 3.08 kg

DRUGS (1)
  1. LANTUS [Suspect]
     Indication: DIABETIC RELATIVE
     Route: 015
     Dates: start: 20100804, end: 20100901

REACTIONS (2)
  - DRUG EXPOSURE DURING PREGNANCY [None]
  - JAUNDICE [None]
